FAERS Safety Report 4895427-8 (Version None)
Quarter: 2006Q1

REPORT INFORMATION
  Report Type: 
  Country: None (occurrence: None)
  Receive Date: 20060124
  Receipt Date: 20050812
  Transmission Date: 20060701
  Serious: Yes (Death)
  Sender: FDA-Public Use
  Company Number: 2006BH000603

PATIENT

DRUGS (2)
  1. 5% DEXTROSE AND 0.9% SODIUM CHLORIDE INJECTION IN PLASTIC CONTAINER [Suspect]
     Dosage: 80 ML;
     Route: 042
  2. NOREPINEPHRINE BITARTRATE [Suspect]
     Dosage: IV
     Route: 042

REACTIONS (3)
  - DEVICE FAILURE [None]
  - HYPOTENSION [None]
  - IATROGENIC INJURY [None]
